FAERS Safety Report 19287222 (Version 1)
Quarter: 2021Q2

REPORT INFORMATION
  Report Type: Report from Study
  Country: US (occurrence: US)
  Receive Date: 20210522
  Receipt Date: 20210522
  Transmission Date: 20210717
  Serious: Yes (Hospitalization, Other)
  Sender: FDA-Public Use
  Company Number: US-EMD SERONO-9125524

PATIENT
  Age: 57 Year
  Sex: Male

DRUGS (2)
  1. BIOFREEZE                          /00482701/ [Concomitant]
     Indication: MUSCLE SPASMS
  2. REBIF [Suspect]
     Active Substance: INTERFERON BETA-1A
     Indication: MULTIPLE SCLEROSIS
     Route: 058
     Dates: start: 20161012

REACTIONS (4)
  - Arthralgia [Recovering/Resolving]
  - Gun shot wound [Recovered/Resolved]
  - Coronary arterial stent insertion [Recovering/Resolving]
  - Cardiac disorder [Unknown]

NARRATIVE: CASE EVENT DATE: 201612
